FAERS Safety Report 17117912 (Version 1)
Quarter: 2019Q4

REPORT INFORMATION
  Report Type: Spontaneous
  Country: CH (occurrence: CH)
  Receive Date: 20191205
  Receipt Date: 20191205
  Transmission Date: 20200122
  Serious: Yes (Other)
  Sender: FDA-Public Use
  Company Number: CH-PFIZER INC-2019521829

PATIENT
  Age: 48 Year
  Sex: Female

DRUGS (23)
  1. IDARUBICIN HCL [Suspect]
     Active Substance: IDARUBICIN HYDROCHLORIDE
     Dosage: 24 MG, DAILY
     Dates: start: 20191017, end: 20191017
  2. TRETINOIN. [Suspect]
     Active Substance: TRETINOIN
     Dosage: 90 MG, UNK
     Dates: start: 20191015, end: 20191019
  3. ASPIRIN CARDIO [Concomitant]
     Active Substance: ASPIRIN
  4. MYCOSTATINE [Concomitant]
     Active Substance: NYSTATIN
  5. LACRYVISC SE [Concomitant]
     Dosage: AS NECESSARY
  6. PURSANA [Concomitant]
     Active Substance: FIG FRUIT OIL\SORBITOL
     Dosage: AS NECESSARY
  7. DAFALGAN [Concomitant]
     Active Substance: ACETAMINOPHEN
     Dosage: AS NECESSARY
  8. NEXIUM MUPS [ESOMEPRAZOLE SODIUM] [Concomitant]
     Active Substance: ESOMEPRAZOLE SODIUM
  9. MOVICOL [Concomitant]
     Active Substance: POLYETHYLENE GLYCOL 3350\POTASSIUM CHLORIDE\SODIUM BICARBONATE\SODIUM CHLORIDE
     Dosage: AS NECESSARY
  10. ACIDUM FOLICUM [Concomitant]
     Active Substance: FOLIC ACID
  11. LUVIT D3 [Concomitant]
     Active Substance: CHOLECALCIFEROL
  12. TRISENOX [Suspect]
     Active Substance: ARSENIC TRIOXIDE
     Dosage: 13 MG, DAILY
     Dates: start: 20191019, end: 20191019
  13. VALTREX [Concomitant]
     Active Substance: VALACYCLOVIR HYDROCHLORIDE
  14. CEFEPIME [Concomitant]
     Active Substance: CEFEPIME HYDROCHLORIDE
     Dosage: AS NECESSARY
  15. CETIRIZINE [Concomitant]
     Active Substance: CETIRIZINE HYDROCHLORIDE
     Dosage: AS NECESSARY
  16. DISTRANEURIN [CLOMETHIAZOLE] [Concomitant]
     Active Substance: CLOMETHIAZOLE
     Dosage: AS NECESSARY
  17. ONDANSETRON [Concomitant]
     Active Substance: ONDANSETRON
     Dosage: AS NECESSARY
  18. ATORVASTATIN [Concomitant]
     Active Substance: ATORVASTATIN
  19. PASPERTIN [METOCLOPRAMIDE HYDROCHLORIDE] [Concomitant]
     Active Substance: METOCLOPRAMIDE HYDROCHLORIDE
     Dosage: AS NECESSARY
  20. CLEXANE [Concomitant]
     Active Substance: ENOXAPARIN SODIUM
  21. TEMESTA [LORAZEPAM] [Concomitant]
     Active Substance: LORAZEPAM
     Dosage: AS NECESSARY
  22. IDARUBICIN HCL [Suspect]
     Active Substance: IDARUBICIN HYDROCHLORIDE
     Dosage: 24 MG, SINGLE
     Dates: start: 20191015, end: 20191015
  23. LAXOBERON [Concomitant]
     Active Substance: SODIUM PICOSULFATE
     Dosage: AS NECESSARY

REACTIONS (3)
  - Leukopenia [Unknown]
  - Electrocardiogram QT prolonged [Not Recovered/Not Resolved]
  - Anaemia [Unknown]
